FAERS Safety Report 9711324 (Version 2)
Quarter: 2013Q4

REPORT INFORMATION
  Report Type: Spontaneous
  Country: US (occurrence: US)
  Receive Date: 20131126
  Receipt Date: 20131202
  Transmission Date: 20140711
  Serious: No
  Sender: FDA-Public Use
  Company Number: US-BAYER-2013-137246

PATIENT
  Age: 90 Year
  Sex: Female

DRUGS (2)
  1. CIPROFLOXACIN [Suspect]
     Indication: WOUND INFECTION PSEUDOMONAS
     Dosage: 500 MG, BID
  2. METHOTREXATE [Interacting]
     Indication: PSORIASIS
     Dosage: 12.5 MG, WEEKLY

REACTIONS (8)
  - Drug interaction [None]
  - Psoriasis [Recovered/Resolved]
  - Skin ulcer [Recovered/Resolved]
  - Mouth ulceration [Recovered/Resolved]
  - Abdominal discomfort [Recovered/Resolved]
  - Liver function test abnormal [None]
  - Blood creatinine increased [Recovered/Resolved]
  - Platelet count decreased [Recovered/Resolved]
